FAERS Safety Report 8617726-6 (Version None)
Quarter: 2012Q3

REPORT INFORMATION
  Report Type: 
  Country: None (occurrence: None)
  Receive Date: 20120824
  Receipt Date: 20120327
  Transmission Date: 20120928
  Serious: No
  Sender: FDA-Public Use
  Company Number: US-ASTRAZENECA-2012SE03637

PATIENT
  Age: 82 Year
  Sex: Female
  Weight: 54.4 kg

DRUGS (2)
  1. SPIRIVA [Concomitant]
     Indication: CHRONIC OBSTRUCTIVE PULMONARY DISEASE
  2. SYMBICORT [Suspect]
     Route: 055

REACTIONS (2)
  - COORDINATION ABNORMAL [None]
  - DRUG ADMINISTERED IN WRONG DEVICE [None]
